FAERS Safety Report 12765961 (Version 1)
Quarter: 2016Q3

REPORT INFORMATION
  Report Type: Spontaneous
  Country: US (occurrence: US)
  Receive Date: 20160920
  Receipt Date: 20160920
  Transmission Date: 20161109
  Serious: No
  Sender: FDA-Public Use
  Company Number: None

PATIENT
  Age: 38 Year
  Sex: Male
  Weight: 69.75 kg

DRUGS (5)
  1. CEPHALEXIN 500 CAPSULES [Suspect]
     Active Substance: CEPHALEXIN
     Indication: SKIN INFECTION
     Route: 048
     Dates: start: 20160916, end: 20160919
  2. DEXILANT [Concomitant]
     Active Substance: DEXLANSOPRAZOLE
  3. METHOTREXATE. [Concomitant]
     Active Substance: METHOTREXATE
  4. FOLIC ACID. [Concomitant]
     Active Substance: FOLIC ACID
  5. ALBUTEROL. [Concomitant]
     Active Substance: ALBUTEROL

REACTIONS (3)
  - Feeling abnormal [None]
  - Blood glucose increased [None]
  - Impaired quality of life [None]

NARRATIVE: CASE EVENT DATE: 20160916
